FAERS Safety Report 9530126 (Version 1)
Quarter: 2013Q3

REPORT INFORMATION
  Report Type: Spontaneous
  Country: TW (occurrence: TW)
  Receive Date: 20130917
  Receipt Date: 20130917
  Transmission Date: 20140515
  Serious: Yes (Death, Other)
  Sender: FDA-Public Use
  Company Number: TW-BAXTER-2013BAX035814

PATIENT
  Age: 16 Year
  Sex: Male

DRUGS (13)
  1. HOLOXAN (2GM) [Suspect]
     Indication: OSTEOSARCOMA
     Dosage: 2.4 G/M2 OVER 24HRS ON WEEK 2
     Route: 041
     Dates: end: 200612
  2. HOLOXAN (2GM) [Suspect]
     Dosage: 3.0 G/M2 FOR 24 HRS ON WEEK 10, 23, 34 AND 45
     Route: 041
     Dates: end: 200612
  3. HOLOXAN (2GM) [Suspect]
     Dosage: TOTAL DOSE 75 G/M2
     Route: 041
     Dates: end: 200612
  4. ADRIAMYCIN [Suspect]
     Indication: OSTEOSARCOMA
     Dosage: DEPENDING ON THE WEEK
     Route: 041
     Dates: end: 200612
  5. ADRIAMYCIN [Suspect]
     Dosage: DEPENDING ON THE WEEK
     Route: 041
     Dates: end: 200612
  6. ADRIAMYCIN [Suspect]
     Route: 041
     Dates: end: 200612
  7. CISPLATIN [Suspect]
     Indication: OSTEOSARCOMA
     Dosage: DEPENDING ON THE WEEK
     Route: 041
     Dates: end: 200612
  8. CISPLATIN [Suspect]
     Dosage: DEPENDING ON THE WEEK
     Route: 041
     Dates: end: 200612
  9. CISPLATIN [Suspect]
     Route: 041
     Dates: end: 200612
  10. METHOTREXATE [Suspect]
     Indication: OSTEOSARCOMA
     Dosage: 12G/M2 FOR 4HRS
     Route: 041
     Dates: end: 200612
  11. METHOTREXATE [Suspect]
     Dosage: TOTAL DOSE 108 G/M2
     Route: 041
     Dates: end: 200612
  12. VP-16 [Suspect]
     Indication: OSTEOSARCOMA
     Dosage: FOR 1 HR
     Route: 041
     Dates: end: 200612
  13. VP-16 [Suspect]
     Route: 041
     Dates: end: 200612

REACTIONS (3)
  - Death [Fatal]
  - Acute myeloid leukaemia [Not Recovered/Not Resolved]
  - Leukaemia cutis [Recovering/Resolving]
